FAERS Safety Report 7927345-2 (Version None)
Quarter: 2011Q4

REPORT INFORMATION
  Report Type: 
  Country: None (occurrence: None)
  Receive Date: 20111118
  Receipt Date: 20111114
  Transmission Date: 20120403
  Serious: Yes (Other)
  Sender: FDA-Public Use
  Company Number: US-B.I. PHARMACEUTICALS,INC./RIDGEFIELD-2011-BP-26411PF

PATIENT
  Sex: Female

DRUGS (4)
  1. CELEBREX [Suspect]
  2. LIPITOR [Suspect]
  3. EFFEXOR XR [Suspect]
  4. SPIRIVA [Suspect]

REACTIONS (2)
  - ARTHRITIS [None]
  - CHRONIC OBSTRUCTIVE PULMONARY DISEASE [None]
